APPROVED DRUG PRODUCT: RISPERIDONE
Active Ingredient: RISPERIDONE
Strength: 4MG
Dosage Form/Route: TABLET;ORAL
Application: A078707 | Product #006 | TE Code: AB
Applicant: RENATA PLC
Approved: Dec 29, 2008 | RLD: No | RS: No | Type: RX